FAERS Safety Report 6266586-X (Version None)
Quarter: 2009Q3

REPORT INFORMATION
  Report Type: 
  Country: None (occurrence: None)
  Receive Date: 20090710
  Receipt Date: 20090702
  Transmission Date: 20100115
  Serious: Yes (Disabling)
  Sender: FDA-Public Use
  Company Number: 316632

PATIENT
  Sex: Male

DRUGS (1)
  1. MARCAINE [Suspect]
     Indication: ANALGESIA
     Dosage: CONTINUOUS INJECTION
     Dates: start: 20031001

REACTIONS (2)
  - CHONDROLYSIS [None]
  - OSTEOARTHRITIS [None]
